FAERS Safety Report 6632730-5 (Version None)
Quarter: 2010Q1

REPORT INFORMATION
  Report Type: 
  Country: None (occurrence: None)
  Receive Date: 20100312
  Receipt Date: 20100301
  Transmission Date: 20100710
  Serious: Yes (Death)
  Sender: FDA-Public Use
  Company Number: DE-ELI_LILLY_AND_COMPANY-DE201003000123

PATIENT
  Sex: Male

DRUGS (9)
  1. CIALIS [Suspect]
     Indication: ERECTILE DYSFUNCTION
     Dosage: 20 MG, UNKNOWN
     Route: 048
  2. NEBILET [Concomitant]
     Dosage: 0.5 D/F, EACH MORNING
  3. CYNT [Concomitant]
     Dosage: 1 D/F, EACH EVENING
  4. CORIFEO [Concomitant]
     Dosage: 20 MG, EACH MORNING
  5. DIOVAN [Concomitant]
     Dosage: 160 MG, EACH MORNING
  6. SPIRONOLACTONE [Concomitant]
     Dosage: 25 MG, EACH MORNING
  7. NEXIUM-MUPS                        /01479302/ [Concomitant]
     Dosage: 40 MG, EACH MORNING
  8. MAALOXAN [Concomitant]
     Dosage: UNK, AS NEEDED
  9. SIMVASTATIN [Concomitant]
     Dosage: 10 MG, EACH EVENING

REACTIONS (1)
  - SUDDEN DEATH [None]
